FAERS Safety Report 22394094 (Version 1)
Quarter: 2023Q2

REPORT INFORMATION
  Report Type: Spontaneous
  Country: US (occurrence: US)
  Receive Date: 20230601
  Receipt Date: 20230601
  Transmission Date: 20230722
  Serious: Yes (Other)
  Sender: FDA-Public Use
  Company Number: US-PFIZER INC-202300205926

PATIENT
  Age: 40 Year
  Sex: Female

DRUGS (3)
  1. PAXLOVID [Suspect]
     Active Substance: NIRMATRELVIR\RITONAVIR
     Indication: COVID-19 treatment
     Dosage: UNK
     Dates: start: 20230517, end: 20230522
  2. OXYCODONE [Concomitant]
     Active Substance: OXYCODONE
     Dosage: 15 MG
     Route: 048
     Dates: start: 20210901, end: 20230529
  3. UBRELVY [Concomitant]
     Active Substance: UBROGEPANT
     Dates: start: 20220103

REACTIONS (2)
  - Withdrawal syndrome [Recovering/Resolving]
  - Contraindicated product administered [Unknown]

NARRATIVE: CASE EVENT DATE: 20230517
